FAERS Safety Report 11626284 (Version 1)
Quarter: 2015Q4

REPORT INFORMATION
  Report Type: Spontaneous
  Country: US (occurrence: US)
  Receive Date: 20151013
  Receipt Date: 20151013
  Transmission Date: 20160304
  Serious: No
  Sender: FDA-Public Use
  Company Number: US-BAYER-2015-426926

PATIENT
  Age: 68 Year
  Sex: Male

DRUGS (5)
  1. PRIMADEX [SULFAMETHOXAZOLE,TRIMETHOPRIM] [Concomitant]
     Dosage: 1 DF, UNK
     Route: 048
  2. MOXIFLOXACIN ORAL [Suspect]
     Active Substance: MOXIFLOXACIN
     Dosage: UNK
  3. ACYCLOVIR [ACICLOVIR SODIUM] [Concomitant]
     Dosage: 400 MG, BID
     Route: 048
  4. PENICILLIN VK [Concomitant]
     Active Substance: PENICILLIN V POTASSIUM
     Dosage: 500 MG, BID
     Route: 048
  5. VORICONAZOLE. [Concomitant]
     Active Substance: VORICONAZOLE
     Dosage: 200 MG, BID
     Route: 048

REACTIONS (1)
  - Off label use [None]
